FAERS Safety Report 6021791-2 (Version None)
Quarter: 2008Q4

REPORT INFORMATION
  Report Type: 
  Country: None (occurrence: None)
  Receive Date: 20081229
  Receipt Date: 20081218
  Transmission Date: 20090506
  Serious: Yes (Other)
  Sender: FDA-Public Use
  Company Number: AU-AVENTIS-200821779GDDC

PATIENT
  Sex: Male

DRUGS (4)
  1. LANTUS [Suspect]
     Route: 058
     Dates: start: 20051218
  2. LANTUS [Suspect]
     Route: 058
     Dates: start: 20051218
  3. AUTOPEN INSULIN INJECTION PEN [Suspect]
  4. NOVORAPID [Concomitant]
     Dates: start: 20081201

REACTIONS (1)
  - NON-HODGKIN'S LYMPHOMA [None]
